FAERS Safety Report 24967064 (Version 1)
Quarter: 2025Q1

REPORT INFORMATION
  Report Type: Spontaneous
  Country: US (occurrence: US)
  Receive Date: 20250213
  Receipt Date: 20250213
  Transmission Date: 20250409
  Serious: No
  Sender: TEVA
  Company Number: US-TEVA-VS-3291849

PATIENT

DRUGS (1)
  1. RAMELTEON [Suspect]
     Active Substance: RAMELTEON
     Indication: Insomnia
     Route: 048

REACTIONS (2)
  - Brain fog [Unknown]
  - Lethargy [Unknown]
